FAERS Safety Report 21955295 (Version 1)
Quarter: 2023Q1

REPORT INFORMATION
  Report Type: Spontaneous
  Country: SE (occurrence: SE)
  Receive Date: 20230206
  Receipt Date: 20230206
  Transmission Date: 20230417
  Serious: Yes (Hospitalization, Other)
  Sender: FDA-Public Use
  Company Number: SE-AUROBINDO-AUR-APL-2023-004889

PATIENT
  Age: 75 Year
  Sex: Male

DRUGS (10)
  1. OLANZAPINE [Suspect]
     Active Substance: OLANZAPINE
     Indication: Product used for unknown indication
     Dosage: UNK
     Route: 065
     Dates: start: 20180302
  2. ELIQUIS [Concomitant]
     Active Substance: APIXABAN
     Indication: Product used for unknown indication
     Dosage: UNK (1 X 2 I 14D)
     Route: 065
     Dates: start: 20230102
  3. SOLVEZINK [Concomitant]
     Indication: Product used for unknown indication
     Dosage: UNK (1X2I10V)
     Route: 065
     Dates: start: 20230102
  4. RISPERIDONE [Concomitant]
     Active Substance: RISPERIDONE
     Indication: Product used for unknown indication
     Dosage: UNK (1KL17)
     Route: 065
     Dates: start: 20180302
  5. MOVICOL [Concomitant]
     Active Substance: POLYETHYLENE GLYCOL 3350\POTASSIUM CHLORIDE\SODIUM BICARBONATE\SODIUM CHLORIDE
     Indication: Product used for unknown indication
     Dosage: UNK (1X1TV)
     Route: 065
     Dates: start: 20190204
  6. ACETAMINOPHEN [Concomitant]
     Active Substance: ACETAMINOPHEN
     Indication: Product used for unknown indication
     Dosage: UNK (2 X 4 TV)
     Route: 065
     Dates: start: 20220326, end: 20230108
  7. Inotyol [Concomitant]
     Indication: Product used for unknown indication
     Dosage: UNK (1VBTV)
     Route: 065
     Dates: start: 20190203
  8. CARBOMER [Concomitant]
     Active Substance: CARBOMER
     Indication: Product used for unknown indication
     Dosage: UNK (1X3TV)
     Route: 065
     Dates: start: 20190705
  9. LOSARTAN [Concomitant]
     Active Substance: LOSARTAN
     Indication: Product used for unknown indication
     Dosage: UNK (1X1TV)
     Route: 065
     Dates: start: 20190204
  10. Folacin [Concomitant]
     Indication: Product used for unknown indication
     Dosage: UNK (1 X 1 TV)
     Route: 065
     Dates: start: 20190702

REACTIONS (3)
  - Depressed level of consciousness [Recovering/Resolving]
  - Bradycardia [Recovering/Resolving]
  - Hypotension [Recovering/Resolving]

NARRATIVE: CASE EVENT DATE: 20230105
